FAERS Safety Report 15020386 (Version 1)
Quarter: 2018Q2

REPORT INFORMATION
  Report Type: Spontaneous
  Country: US (occurrence: US)
  Receive Date: 20180618
  Receipt Date: 20180618
  Transmission Date: 20180711
  Serious: No
  Sender: FDA-Public Use
  Company Number: US-UNITED THERAPEUTICS-UNT-2018-008554

PATIENT
  Age: 72 Year
  Sex: Female
  Weight: 72.11 kg

DRUGS (1)
  1. REMODULIN [Suspect]
     Active Substance: TREPROSTINIL
     Indication: PULMONARY ARTERIAL HYPERTENSION
     Dosage: 0.035 ?G/KG, CONTINUING
     Route: 058
     Dates: start: 20180314

REACTIONS (3)
  - Fall [Recovered/Resolved with Sequelae]
  - Syncope [Unknown]
  - Head injury [Unknown]

NARRATIVE: CASE EVENT DATE: 20180609
